FAERS Safety Report 19233615 (Version 1)
Quarter: 2021Q2

REPORT INFORMATION
  Report Type: Spontaneous
  Country: GB (occurrence: GB)
  Receive Date: 20210507
  Receipt Date: 20210507
  Transmission Date: 20210717
  Serious: Yes (Other)
  Sender: FDA-Public Use
  Company Number: NVSC2021GB099886

PATIENT
  Sex: Female

DRUGS (1)
  1. GILENYA [Suspect]
     Active Substance: FINGOLIMOD HYDROCHLORIDE
     Indication: PRODUCT USED FOR UNKNOWN INDICATION
     Dosage: UNK
     Route: 065

REACTIONS (6)
  - Rebound effect [Unknown]
  - Secondary progressive multiple sclerosis [Unknown]
  - Gait disturbance [Unknown]
  - Anxiety [Unknown]
  - Brain stem syndrome [Unknown]
  - Multiple sclerosis relapse [Recovering/Resolving]
